FAERS Safety Report 6163544-0 (Version None)
Quarter: 2009Q2

REPORT INFORMATION
  Report Type: 
  Country: None (occurrence: None)
  Receive Date: 20090420
  Receipt Date: 20090420
  Transmission Date: 20091009
  Serious: Yes (Life-Threatening, Other)
  Sender: FDA-Public Use
  Company Number: None

PATIENT
  Sex: Female
  Weight: 71.2147 kg

DRUGS (1)
  1. DIGOXIN [Suspect]

REACTIONS (12)
  - APPARENT DEATH [None]
  - ARRHYTHMIA [None]
  - BRADYCARDIA [None]
  - CARDIAC DISORDER [None]
  - EXTRASYSTOLES [None]
  - FEAR [None]
  - HEART RATE IRREGULAR [None]
  - PALPITATIONS [None]
  - PRODUCT MEASURED POTENCY ISSUE [None]
  - PRODUCT QUALITY ISSUE [None]
  - SLEEP DISORDER [None]
  - UNEVALUABLE EVENT [None]
